FAERS Safety Report 21015266 (Version 26)
Quarter: 2023Q1

REPORT INFORMATION
  Report Type: Report from Study
  Country: BR (occurrence: None)
  Receive Date: 20220628
  Receipt Date: 20230106
  Transmission Date: 20230418
  Serious: Yes (Death, Hospitalization)
  Sender: FDA-Public Use
  Company Number: BR-ROCHE-3119691

PATIENT
  Age: 63 Year
  Sex: Female
  Weight: 91.4 kg

DRUGS (147)
  1. OCRELIZUMAB [Suspect]
     Active Substance: OCRELIZUMAB
     Indication: Relapsing-remitting multiple sclerosis
     Dosage: WEEK 1?SHE HAD RECEIVED HER OTHER DOSE OF OCRELIZUMAB ON 26/DEC/2012 (WEEK 2)
     Route: 042
     Dates: start: 20121212, end: 20121212
  2. OCRELIZUMAB [Suspect]
     Active Substance: OCRELIZUMAB
     Dosage: WEEK 24?SHE HAD RECEIVED HER OTHER DOSE OF OCRELIZUMAB ON 13/NOV/2013 (WEEK 48) AND ON 30/APR/2014 (
     Route: 042
     Dates: start: 20130529, end: 20130529
  3. PLACEBO [Suspect]
     Active Substance: UNSPECIFIED INGREDIENT
     Indication: Relapsing-remitting multiple sclerosis
     Route: 058
     Dates: start: 20121212, end: 20121212
  4. PLACEBO [Suspect]
     Active Substance: UNSPECIFIED INGREDIENT
     Route: 058
     Dates: start: 20141015, end: 20141027
  5. OCRELIZUMAB [Suspect]
     Active Substance: OCRELIZUMAB
     Indication: Relapsing-remitting multiple sclerosis
     Dosage: OLE WEEK 0, SHE RECEIVED HER NEXT DOSE OF OPEN LABEL OCRELIZUMAB ON 18/NOV/2014 (OLE WEEK 2) (LOT: 1
     Route: 042
     Dates: start: 20141106, end: 20141106
  6. OCRELIZUMAB [Suspect]
     Active Substance: OCRELIZUMAB
     Dosage: SHE RECEIVED HER SUBSEQUENT DOSES OF OPEN LABEL OCRELIZUMAB ON 09/OCT/2015 (LOT: 1147100), 23/MAR/20
     Route: 042
     Dates: start: 20150427, end: 20150427
  7. RANITIDINE [Concomitant]
     Active Substance: RANITIDINE
     Dates: start: 20121212
  8. RANITIDINE [Concomitant]
     Active Substance: RANITIDINE
     Dates: start: 20121226
  9. RANITIDINE [Concomitant]
     Active Substance: RANITIDINE
     Dates: start: 20130529
  10. RANITIDINE [Concomitant]
     Active Substance: RANITIDINE
     Dates: start: 20131113
  11. RANITIDINE [Concomitant]
     Active Substance: RANITIDINE
     Dates: start: 20140430
  12. RANITIDINE [Concomitant]
     Active Substance: RANITIDINE
     Dates: start: 20141106
  13. RANITIDINE [Concomitant]
     Active Substance: RANITIDINE
     Dates: start: 20141118
  14. RANITIDINE [Concomitant]
     Active Substance: RANITIDINE
     Dates: start: 20150427
  15. RANITIDINE [Concomitant]
     Active Substance: RANITIDINE
     Dates: start: 20151009
  16. RANITIDINE [Concomitant]
     Active Substance: RANITIDINE
     Dates: start: 20160323
  17. RANITIDINE [Concomitant]
     Active Substance: RANITIDINE
     Dates: start: 20170222
  18. RANITIDINE [Concomitant]
     Active Substance: RANITIDINE
     Dates: start: 20170809
  19. RANITIDINE [Concomitant]
     Active Substance: RANITIDINE
     Dates: start: 20180130
  20. RANITIDINE [Concomitant]
     Active Substance: RANITIDINE
     Dates: start: 20180717
  21. RANITIDINE [Concomitant]
     Active Substance: RANITIDINE
     Dates: start: 20190110
  22. RANITIDINE [Concomitant]
     Active Substance: RANITIDINE
     Dates: start: 20190617
  23. RANITIDINE [Concomitant]
     Active Substance: RANITIDINE
     Dates: start: 20191220
  24. RANITIDINE [Concomitant]
     Active Substance: RANITIDINE
     Dates: start: 20200522
  25. RANITIDINE [Concomitant]
     Active Substance: RANITIDINE
     Dates: start: 20160921
  26. ACETAMINOPHEN [Concomitant]
     Active Substance: ACETAMINOPHEN
     Dates: start: 20151009, end: 20220610
  27. ACETAMINOPHEN [Concomitant]
     Active Substance: ACETAMINOPHEN
     Dates: start: 20160323
  28. ACETAMINOPHEN [Concomitant]
     Active Substance: ACETAMINOPHEN
     Dates: start: 20170222
  29. ACETAMINOPHEN [Concomitant]
     Active Substance: ACETAMINOPHEN
     Dates: start: 20170809
  30. ACETAMINOPHEN [Concomitant]
     Active Substance: ACETAMINOPHEN
     Dates: start: 20180130
  31. ACETAMINOPHEN [Concomitant]
     Active Substance: ACETAMINOPHEN
     Dates: start: 20180717
  32. ACETAMINOPHEN [Concomitant]
     Active Substance: ACETAMINOPHEN
     Dates: start: 20190110
  33. ACETAMINOPHEN [Concomitant]
     Active Substance: ACETAMINOPHEN
     Dates: start: 20190617
  34. ACETAMINOPHEN [Concomitant]
     Active Substance: ACETAMINOPHEN
     Dates: start: 20191220
  35. ACETAMINOPHEN [Concomitant]
     Active Substance: ACETAMINOPHEN
     Dates: start: 20200522
  36. ACETAMINOPHEN [Concomitant]
     Active Substance: ACETAMINOPHEN
     Dates: start: 20201030
  37. ACETAMINOPHEN [Concomitant]
     Active Substance: ACETAMINOPHEN
     Dates: start: 20210416
  38. ACETAMINOPHEN [Concomitant]
     Active Substance: ACETAMINOPHEN
     Dates: start: 20210927
  39. ACETAMINOPHEN [Concomitant]
     Active Substance: ACETAMINOPHEN
     Dates: start: 20220321
  40. ACETAMINOPHEN [Concomitant]
     Active Substance: ACETAMINOPHEN
     Dates: start: 20160921
  41. ACETAMINOPHEN [Concomitant]
     Active Substance: ACETAMINOPHEN
     Dates: start: 20220520
  42. ACETAMINOPHEN [Concomitant]
     Active Substance: ACETAMINOPHEN
     Dates: start: 20121212, end: 20121212
  43. ACETAMINOPHEN [Concomitant]
     Active Substance: ACETAMINOPHEN
     Dates: start: 20220822, end: 20220822
  44. HYDROXYZINE [Concomitant]
     Active Substance: HYDROXYZINE HYDROCHLORIDE
     Dates: start: 20170222
  45. HYDROXYZINE [Concomitant]
     Active Substance: HYDROXYZINE HYDROCHLORIDE
     Dates: start: 20170809
  46. HYDROXYZINE [Concomitant]
     Active Substance: HYDROXYZINE HYDROCHLORIDE
     Dates: start: 20180130
  47. HYDROXYZINE [Concomitant]
     Active Substance: HYDROXYZINE HYDROCHLORIDE
     Dates: start: 20180717
  48. HYDROXYZINE [Concomitant]
     Active Substance: HYDROXYZINE HYDROCHLORIDE
     Dates: start: 20190110
  49. HYDROXYZINE [Concomitant]
     Active Substance: HYDROXYZINE HYDROCHLORIDE
     Dates: start: 20190117
  50. HYDROXYZINE [Concomitant]
     Active Substance: HYDROXYZINE HYDROCHLORIDE
     Dates: start: 20191220
  51. HYDROXYZINE [Concomitant]
     Active Substance: HYDROXYZINE HYDROCHLORIDE
     Dates: start: 20200522
  52. HYDROXYZINE [Concomitant]
     Active Substance: HYDROXYZINE HYDROCHLORIDE
     Dates: start: 20201030
  53. HYDROXYZINE [Concomitant]
     Active Substance: HYDROXYZINE HYDROCHLORIDE
     Dates: start: 20210416
  54. HYDROXYZINE [Concomitant]
     Active Substance: HYDROXYZINE HYDROCHLORIDE
     Dates: start: 20210927
  55. HYDROXYZINE [Concomitant]
     Active Substance: HYDROXYZINE HYDROCHLORIDE
     Dates: start: 20220321
  56. HYDROXYZINE [Concomitant]
     Active Substance: HYDROXYZINE HYDROCHLORIDE
     Dates: start: 20220822, end: 20220822
  57. DESLORATADINE [Concomitant]
     Active Substance: DESLORATADINE
     Indication: Sinusitis
     Dates: start: 2021, end: 20220622
  58. DESLORATADINE [Concomitant]
     Active Substance: DESLORATADINE
     Dates: start: 20140723, end: 20140729
  59. COLLAGEN [Concomitant]
     Active Substance: COLLAGEN
     Dates: start: 2018
  60. MALVATRICIN [HYDROXYQUINOLINE SULFATE;TYROTHRICIN] [Concomitant]
     Dates: start: 2022
  61. CYCLOBENZAPRINE [Concomitant]
     Active Substance: CYCLOBENZAPRINE
     Dates: start: 2021, end: 2021
  62. SIMETHICONE (DIMETHICONE) [Concomitant]
     Active Substance: DIMETHICONE
     Dates: start: 2021
  63. VENLAFAXINE [Concomitant]
     Active Substance: VENLAFAXINE HYDROCHLORIDE
     Indication: Depression
     Dates: start: 2021
  64. VENLAFAXINE [Concomitant]
     Active Substance: VENLAFAXINE HYDROCHLORIDE
     Dates: start: 20210608
  65. VENLAFAXINE [Concomitant]
     Active Substance: VENLAFAXINE HYDROCHLORIDE
     Dates: start: 20210705, end: 2021
  66. VENLAFAXINE [Concomitant]
     Active Substance: VENLAFAXINE HYDROCHLORIDE
     Dates: start: 20210324, end: 20210608
  67. VENLAFAXINE [Concomitant]
     Active Substance: VENLAFAXINE HYDROCHLORIDE
     Dates: start: 20180904, end: 20190510
  68. RIVOTRIL [Concomitant]
     Active Substance: CLONAZEPAM
     Dates: start: 20200522
  69. CLAVULANATE POTASSIUM [Concomitant]
     Active Substance: CLAVULANATE POTASSIUM
     Dates: start: 20210705, end: 20220604
  70. CLAVULANATE POTASSIUM [Concomitant]
     Active Substance: CLAVULANATE POTASSIUM
     Dates: start: 20220520
  71. HYALURONIC ACID [Concomitant]
     Active Substance: HYALURONIC ACID
     Dates: start: 20220314
  72. PREDNISONE [Concomitant]
     Active Substance: PREDNISONE
     Dates: start: 20220520, end: 20220610
  73. PREDNISONE [Concomitant]
     Active Substance: PREDNISONE
     Dates: start: 20160317, end: 20160321
  74. PREDNISONE [Concomitant]
     Active Substance: PREDNISONE
     Dates: start: 20170204, end: 20170208
  75. PREDNISONE [Concomitant]
     Active Substance: PREDNISONE
     Dates: start: 20220727, end: 20220802
  76. PREDNISONE [Concomitant]
     Active Substance: PREDNISONE
     Dates: start: 20220803, end: 20220809
  77. PREDNISONE [Concomitant]
     Active Substance: PREDNISONE
     Dates: start: 20220810, end: 20221109
  78. AMOXICILLIN [Concomitant]
     Active Substance: AMOXICILLIN
     Dates: start: 20220520, end: 20220604
  79. CARBOCYSTEINE [Concomitant]
     Active Substance: CARBOCYSTEINE
     Dates: start: 20220520, end: 20220606
  80. DIPYRON [Concomitant]
     Dosage: NEXT DOSE : 22/JUN/2022
     Dates: start: 20220520, end: 20220610
  81. DIMENHYDRINATE\PYRIDOXINE HYDROCHLORIDE [Concomitant]
     Active Substance: DIMENHYDRINATE\PYRIDOXINE HYDROCHLORIDE
     Dosage: NEXT DOSE 22/JUN/2022 ?1 TABLET
     Dates: start: 20220520, end: 20221109
  82. ACETYLCYSTEINE [Concomitant]
     Active Substance: ACETYLCYSTEINE
     Indication: Sinusitis
     Dates: start: 20220607, end: 20220610
  83. ACETYLCYSTEINE [Concomitant]
     Active Substance: ACETYLCYSTEINE
     Dates: start: 20160404, end: 20160410
  84. DYMISTA [Concomitant]
     Active Substance: AZELASTINE HYDROCHLORIDE\FLUTICASONE PROPIONATE
     Dosage: 1 SPRAY
     Dates: start: 20220607, end: 20220610
  85. MIKANIA GLOMERATA [Concomitant]
     Dates: start: 20220607, end: 20220610
  86. TIBOLONE [Concomitant]
     Active Substance: TIBOLONE
     Indication: Hormone replacement therapy
     Dates: start: 20170530
  87. ARNICA MONTANA FLOWER [Concomitant]
     Active Substance: ARNICA MONTANA FLOWER
     Indication: Nausea
     Dates: start: 20210816
  88. HYDRASTIS [Concomitant]
     Active Substance: HERBALS\HOMEOPATHICS\GOLDENSEAL
     Indication: Nausea
     Dates: start: 20210816
  89. PASSIFLORA [Concomitant]
     Indication: Nausea
     Dates: start: 20210816
  90. SEPIA [SEPIA OFFICINALIS] [Concomitant]
     Indication: Nausea
     Dates: start: 20210816
  91. PREGABALIN [Concomitant]
     Active Substance: PREGABALIN
     Dates: start: 20170620, end: 2018
  92. PREGABALIN [Concomitant]
     Active Substance: PREGABALIN
     Dates: start: 20180703, end: 201911
  93. PREGABALIN [Concomitant]
     Active Substance: PREGABALIN
     Dates: start: 20191127
  94. DIPHENHYDRAMINE [Concomitant]
     Active Substance: DIPHENHYDRAMINE
     Dates: start: 20121212
  95. DIPHENHYDRAMINE [Concomitant]
     Active Substance: DIPHENHYDRAMINE
     Dates: start: 20121226
  96. DIPHENHYDRAMINE [Concomitant]
     Active Substance: DIPHENHYDRAMINE
     Dates: start: 20130529
  97. DIPHENHYDRAMINE [Concomitant]
     Active Substance: DIPHENHYDRAMINE
     Dates: start: 20131113
  98. DIPHENHYDRAMINE [Concomitant]
     Active Substance: DIPHENHYDRAMINE
     Dates: start: 20140430
  99. DIPHENHYDRAMINE [Concomitant]
     Active Substance: DIPHENHYDRAMINE
     Dates: start: 20141106
  100. DIPHENHYDRAMINE [Concomitant]
     Active Substance: DIPHENHYDRAMINE
     Dates: start: 20141118
  101. DIPHENHYDRAMINE [Concomitant]
     Active Substance: DIPHENHYDRAMINE
     Dates: start: 20150427
  102. DIPHENHYDRAMINE [Concomitant]
     Active Substance: DIPHENHYDRAMINE
     Dates: start: 20151009
  103. DIPHENHYDRAMINE [Concomitant]
     Active Substance: DIPHENHYDRAMINE
     Dates: start: 20160323
  104. DIPHENHYDRAMINE [Concomitant]
     Active Substance: DIPHENHYDRAMINE
     Dates: start: 20160921
  105. FEXOFENADINE [Concomitant]
     Active Substance: FEXOFENADINE HYDROCHLORIDE
     Dosage: RECEIVED ON 22/JUN/2022
     Dates: start: 20220621, end: 20220729
  106. FEXOFENADINE [Concomitant]
     Active Substance: FEXOFENADINE HYDROCHLORIDE
     Dates: start: 20220729, end: 20221109
  107. BUDESONIDE [Concomitant]
     Active Substance: BUDESONIDE
     Dates: start: 20220621, end: 20220717
  108. CODEINE [Concomitant]
     Active Substance: CODEINE
     Indication: Cough
     Dates: start: 20220621, end: 20220729
  109. CODEINE [Concomitant]
     Active Substance: CODEINE
     Dates: start: 20220622, end: 20221109
  110. FORMOTEROL FUMARATE [Concomitant]
     Active Substance: FORMOTEROL FUMARATE
     Dates: start: 20220621, end: 20220717
  111. CEFUROXIME [Concomitant]
     Active Substance: CEFUROXIME
     Dosage: 50MG/ML
     Dates: start: 20220630
  112. SULFAMETHOXAZOLE\TRIMETHOPRIM [Concomitant]
     Active Substance: SULFAMETHOXAZOLE\TRIMETHOPRIM
     Dosage: SULFAMETAZOLE 400MG+ TRIMETHOPRIMA 80MG
  113. SULFAMETHOXAZOLE [Concomitant]
     Active Substance: SULFAMETHOXAZOLE
     Dates: start: 20220729
  114. METHYLPREDNISOLONE [Concomitant]
     Active Substance: METHYLPREDNISOLONE
     Dates: start: 20121212, end: 20121212
  115. METHYLPREDNISOLONE [Concomitant]
     Active Substance: METHYLPREDNISOLONE
     Dates: start: 20121226, end: 20121226
  116. METHYLPREDNISOLONE [Concomitant]
     Active Substance: METHYLPREDNISOLONE
     Dates: start: 20130529, end: 20130529
  117. METHYLPREDNISOLONE [Concomitant]
     Active Substance: METHYLPREDNISOLONE
     Dates: start: 20131113, end: 20131113
  118. METHYLPREDNISOLONE [Concomitant]
     Active Substance: METHYLPREDNISOLONE
     Dates: start: 20140430, end: 20140430
  119. METHYLPREDNISOLONE [Concomitant]
     Active Substance: METHYLPREDNISOLONE
     Dates: start: 20141106, end: 20141106
  120. METHYLPREDNISOLONE [Concomitant]
     Active Substance: METHYLPREDNISOLONE
     Dates: start: 20141118, end: 20141118
  121. METHYLPREDNISOLONE [Concomitant]
     Active Substance: METHYLPREDNISOLONE
     Dates: start: 20150427, end: 20150427
  122. METHYLPREDNISOLONE [Concomitant]
     Active Substance: METHYLPREDNISOLONE
     Dates: start: 20151009, end: 20151009
  123. METHYLPREDNISOLONE [Concomitant]
     Active Substance: METHYLPREDNISOLONE
     Dates: start: 20160323, end: 20160323
  124. METHYLPREDNISOLONE [Concomitant]
     Active Substance: METHYLPREDNISOLONE
     Dates: start: 20170222, end: 20170222
  125. METHYLPREDNISOLONE [Concomitant]
     Active Substance: METHYLPREDNISOLONE
     Dates: start: 20170809, end: 20170809
  126. METHYLPREDNISOLONE [Concomitant]
     Active Substance: METHYLPREDNISOLONE
     Dates: start: 20180130, end: 20180130
  127. METHYLPREDNISOLONE [Concomitant]
     Active Substance: METHYLPREDNISOLONE
     Dates: start: 20180717, end: 20180717
  128. METHYLPREDNISOLONE [Concomitant]
     Active Substance: METHYLPREDNISOLONE
     Dates: start: 20190110, end: 20190110
  129. METHYLPREDNISOLONE [Concomitant]
     Active Substance: METHYLPREDNISOLONE
     Dates: start: 20190617, end: 20190617
  130. METHYLPREDNISOLONE [Concomitant]
     Active Substance: METHYLPREDNISOLONE
     Dates: start: 20191220, end: 20191220
  131. METHYLPREDNISOLONE [Concomitant]
     Active Substance: METHYLPREDNISOLONE
     Dates: start: 20200522, end: 20200522
  132. METHYLPREDNISOLONE [Concomitant]
     Active Substance: METHYLPREDNISOLONE
     Dates: start: 20201030, end: 20201030
  133. METHYLPREDNISOLONE [Concomitant]
     Active Substance: METHYLPREDNISOLONE
     Dates: start: 20210416, end: 20210416
  134. METHYLPREDNISOLONE [Concomitant]
     Active Substance: METHYLPREDNISOLONE
     Dates: start: 20210927, end: 20210927
  135. METHYLPREDNISOLONE [Concomitant]
     Active Substance: METHYLPREDNISOLONE
     Dates: start: 20220321, end: 20220321
  136. METHYLPREDNISOLONE [Concomitant]
     Active Substance: METHYLPREDNISOLONE
     Dates: start: 20160921, end: 20160921
  137. METHYLPREDNISOLONE [Concomitant]
     Active Substance: METHYLPREDNISOLONE
     Dates: start: 20141029, end: 20141031
  138. METHYLPREDNISOLONE [Concomitant]
     Active Substance: METHYLPREDNISOLONE
     Dates: start: 20210822, end: 20210822
  139. ACYCLOVIR [Concomitant]
     Active Substance: ACYCLOVIR
     Dosage: NEXT DOSE ON 17 JUL?2022
     Dates: start: 20220622
  140. DOMPERIDONE [Concomitant]
     Active Substance: DOMPERIDONE
  141. METOCLOPRAMIDE [Concomitant]
     Active Substance: METOCLOPRAMIDE
  142. MOMETASONE [Concomitant]
     Active Substance: MOMETASONE
  143. MORPHINE SULFATE [Concomitant]
     Active Substance: MORPHINE SULFATE
     Dates: start: 20220622, end: 20220706
  144. SODIUM CHLORIDE [Concomitant]
     Active Substance: SODIUM CHLORIDE
  145. KETOROLAC [Concomitant]
     Active Substance: KETOROLAC TROMETHAMINE
  146. PREDNISOLONE [Concomitant]
     Active Substance: PREDNISOLONE
  147. DIPHENHYDRAMINE [Concomitant]
     Active Substance: DIPHENHYDRAMINE

REACTIONS (1)
  - COVID-19 pneumonia [Fatal]

NARRATIVE: CASE EVENT DATE: 20220520
